FAERS Safety Report 22262858 (Version 2)
Quarter: 2023Q2

REPORT INFORMATION
  Report Type: Report from Study
  Country: US (occurrence: None)
  Receive Date: 20230428
  Receipt Date: 20230509
  Transmission Date: 20230722
  Serious: Yes (Hospitalization)
  Sender: FDA-Public Use
  Company Number: US-ROCHE-3337394

PATIENT
  Age: 44 Year
  Sex: Female
  Weight: 59 kg

DRUGS (20)
  1. OCRELIZUMAB [Suspect]
     Active Substance: OCRELIZUMAB
     Indication: Relapsing-remitting multiple sclerosis
     Dosage: THEN 600 MG EVERY 6 MONTHS
     Route: 042
     Dates: start: 20220215, end: 20220303
  2. OCRELIZUMAB [Suspect]
     Active Substance: OCRELIZUMAB
     Dosage: SUBSEQUENT DOSE OF OCRELIZUMAB: 28/MAR/2023
     Route: 042
     Dates: start: 20220927
  3. GABAPENTIN [Concomitant]
     Active Substance: GABAPENTIN
     Indication: Paraesthesia
     Route: 048
     Dates: start: 20211117
  4. IBUPROFEN [Concomitant]
     Active Substance: IBUPROFEN
     Indication: Pain
     Route: 048
     Dates: start: 1989
  5. HERBALS\TURMERIC [Concomitant]
     Active Substance: HERBALS\TURMERIC
     Route: 048
     Dates: start: 19991130
  6. VITAMIN B12 [Concomitant]
     Active Substance: CYANOCOBALAMIN
     Route: 048
     Dates: start: 20211117
  7. MAGNESIUM [Concomitant]
     Active Substance: MAGNESIUM
     Route: 048
     Dates: start: 20211117
  8. ZYRTEC [Concomitant]
     Active Substance: CETIRIZINE HYDROCHLORIDE
     Indication: Hypersensitivity
     Route: 048
     Dates: start: 20230201
  9. VANCOMYCIN [Concomitant]
     Active Substance: VANCOMYCIN
     Dosage: 1500MGBIN NS 250MG
     Route: 042
     Dates: start: 20230415, end: 20230416
  10. CEFTRIAXONE [Concomitant]
     Active Substance: CEFTRIAXONE
     Route: 042
     Dates: start: 20230415, end: 20230416
  11. ACYCLOVIR [Concomitant]
     Active Substance: ACYCLOVIR
     Dosage: 600MG IN NS 100ML
     Route: 042
     Dates: start: 20230415, end: 20230416
  12. HYDROMORPHONE [Concomitant]
     Active Substance: HYDROMORPHONE
     Indication: Pain
     Route: 048
     Dates: start: 20230415, end: 20230416
  13. OXYCODONE [Concomitant]
     Active Substance: OXYCODONE
     Indication: Pain
     Route: 048
     Dates: start: 20230415, end: 20230416
  14. OXYCODONE [Concomitant]
     Active Substance: OXYCODONE
     Route: 048
     Dates: start: 20230417, end: 20230419
  15. CYMBALTA [Concomitant]
     Active Substance: DULOXETINE HYDROCHLORIDE
     Indication: Pain
     Route: 048
     Dates: start: 20230420
  16. GABAPENTIN [Concomitant]
     Active Substance: GABAPENTIN
     Dosage: UP TO 6X/DAY
     Route: 048
     Dates: start: 20230420
  17. TAMSULOSIN [Concomitant]
     Active Substance: TAMSULOSIN
     Route: 048
     Dates: start: 20230422, end: 20230427
  18. TIZANIDINE [Concomitant]
     Active Substance: TIZANIDINE
     Indication: Back pain
     Route: 048
     Dates: start: 20230421, end: 20230422
  19. DOCUSATE SODIUM [Concomitant]
     Active Substance: DOCUSATE SODIUM
     Indication: Constipation
     Route: 048
     Dates: start: 20230425
  20. MIRALAX [Concomitant]
     Active Substance: POLYETHYLENE GLYCOL 3350
     Indication: Constipation
     Route: 048
     Dates: start: 20230422

REACTIONS (3)
  - Dyspnoea [Not Recovered/Not Resolved]
  - Meningitis enteroviral [Recovered/Resolved with Sequelae]
  - Dyspnoea [Recovered/Resolved]

NARRATIVE: CASE EVENT DATE: 20230320
